FAERS Safety Report 19248775 (Version 1)
Quarter: 2021Q2

REPORT INFORMATION
  Report Type: Spontaneous
  Country: US (occurrence: US)
  Receive Date: 20210512
  Receipt Date: 20210512
  Transmission Date: 20210717
  Serious: No
  Sender: FDA-Public Use
  Company Number: US-TAKEDA-2021TUS030061

PATIENT
  Age: 68 Year
  Sex: Female
  Weight: 82 kg

DRUGS (6)
  1. TRINTELLIX [Suspect]
     Active Substance: VORTIOXETINE HYDROBROMIDE
     Indication: ANXIETY
     Dosage: UNK
     Route: 048
     Dates: start: 20210508, end: 20210508
  2. TOUJEO [Concomitant]
     Active Substance: INSULIN GLARGINE
     Indication: DIABETES MELLITUS
     Dosage: UNK
     Route: 065
  3. TRULICITY [Concomitant]
     Active Substance: DULAGLUTIDE
     Indication: DIABETES MELLITUS
     Dosage: UNK
     Route: 065
  4. TRINTELLIX [Suspect]
     Active Substance: VORTIOXETINE HYDROBROMIDE
     Indication: DEPRESSION
     Dosage: 10 MILLIGRAM, QD
     Route: 048
     Dates: start: 20210425
  5. FARXIGA [Concomitant]
     Active Substance: DAPAGLIFLOZIN PROPANEDIOL
     Indication: DIABETES MELLITUS
     Dosage: UNK
     Route: 065
  6. METFORMIN [Concomitant]
     Active Substance: METFORMIN HYDROCHLORIDE
     Indication: DIABETES MELLITUS
     Dosage: 1000 MILLIGRAM, BID
     Route: 065

REACTIONS (13)
  - Gastric disorder [Unknown]
  - Impaired work ability [Unknown]
  - Head discomfort [Unknown]
  - Dyspnoea [Unknown]
  - Eructation [Unknown]
  - Hyperhidrosis [Unknown]
  - Nausea [Unknown]
  - Sinus headache [Unknown]
  - Gastrointestinal sounds abnormal [Unknown]
  - Abdominal distension [Unknown]
  - Wrong technique in product usage process [Unknown]
  - Dizziness [Unknown]
  - Illness [Unknown]

NARRATIVE: CASE EVENT DATE: 20210508
